FAERS Safety Report 7459777-3 (Version None)
Quarter: 2011Q2

REPORT INFORMATION
  Report Type: 
  Country: None (occurrence: None)
  Receive Date: 20110427
  Receipt Date: 20110413
  Transmission Date: 20111010
  Serious: Yes (Death)
  Sender: FDA-Public Use
  Company Number: GER/UKI/11/0018004

PATIENT
  Age: 31 Year
  Sex: Male
  Weight: 101.6 kg

DRUGS (4)
  1. VIMPAT [Suspect]
     Indication: EPILEPSY
     Dosage: 50 MG, 1 IN 1 D, ORAL
     Route: 048
     Dates: start: 20100320, end: 20100426
  2. LAMOTRIGINE [Suspect]
     Indication: EPILEPSY
     Dosage: 100 MG, 2 IN 1 D, ORAL
     Route: 048
     Dates: end: 20100426
  3. VALPROATE SODIUM [Suspect]
     Indication: EPILEPSY
     Dosage: ORAL
     Route: 048
     Dates: end: 20100426
  4. RISPERIDONE [Concomitant]

REACTIONS (2)
  - SUDDEN UNEXPLAINED DEATH IN EPILEPSY [None]
  - ASPHYXIA [None]
